FAERS Safety Report 6231047-0 (Version None)
Quarter: 2009Q2

REPORT INFORMATION
  Report Type: 
  Country: None (occurrence: None)
  Receive Date: 20090616
  Receipt Date: 20090609
  Transmission Date: 20091009
  Serious: Yes (Life-Threatening)
  Sender: FDA-Public Use
  Company Number: JP-ROCHE-633225

PATIENT
  Sex: Female
  Weight: 48 kg

DRUGS (9)
  1. TAMIFLU [Suspect]
     Indication: INFLUENZA
     Route: 048
     Dates: start: 20090213, end: 20090219
  2. CEFAMEZIN [Suspect]
     Indication: PYELONEPHRITIS
     Route: 042
     Dates: start: 20090213, end: 20090219
  3. MEIACT [Suspect]
     Indication: NASOPHARYNGITIS
     Route: 048
     Dates: start: 20090213, end: 20090219
  4. CALONAL [Suspect]
     Indication: NASOPHARYNGITIS
     Route: 048
     Dates: start: 20090213, end: 20090219
  5. EXACIN [Suspect]
     Indication: PYELONEPHRITIS
     Route: 042
     Dates: start: 20090213, end: 20090219
  6. GATIFLOXACIN [Suspect]
     Indication: NASOPHARYNGITIS
     Route: 048
     Dates: start: 20090213, end: 20090219
  7. OPTIRAY 350 [Concomitant]
     Dosage: DRUG NAME REPORTED AS OPTIRAY 160
     Dates: start: 20070216, end: 20070216
  8. OPTIRAY 350 [Concomitant]
     Dates: start: 20080225, end: 20080225
  9. OPTIRAY 350 [Concomitant]
     Dates: start: 20090206, end: 20090206

REACTIONS (1)
  - TUBULOINTERSTITIAL NEPHRITIS [None]
